FAERS Safety Report 10329029 (Version 1)
Quarter: 2014Q3

REPORT INFORMATION
  Report Type: Report from Study
  Country: BE (occurrence: BE)
  Receive Date: 20140721
  Receipt Date: 20140721
  Transmission Date: 20150326
  Serious: Yes (Other)
  Sender: FDA-Public Use
  Company Number: BE-ROXANE LABORATORIES, INC.-2014-BI-32613GD

PATIENT

DRUGS (3)
  1. MIDAZOLAM [Suspect]
     Active Substance: MIDAZOLAM\MIDAZOLAM HYDROCHLORIDE
     Indication: PREMEDICATION
     Dosage: 50 MCG/KG
     Route: 065
  2. ATROPINE [Concomitant]
     Active Substance: ATROPINE
     Indication: PROPHYLAXIS
     Dosage: 20 MCG/KG
     Route: 065
  3. MORPHINE [Suspect]
     Active Substance: MORPHINE
     Indication: PREMEDICATION
     Dosage: 100 MCG/KG
     Route: 065

REACTIONS (1)
  - Laryngospasm [Unknown]
